FAERS Safety Report 5660731-2 (Version None)
Quarter: 2008Q1

REPORT INFORMATION
  Report Type: 
  Country: None (occurrence: None)
  Receive Date: 20080311
  Receipt Date: 20080220
  Transmission Date: 20080703
  Serious: No
  Sender: FDA-Public Use
  Company Number: US-BAYER-200814221NA

PATIENT
  Sex: Male

DRUGS (3)
  1. LEVITRA [Suspect]
     Indication: ERECTILE DYSFUNCTION
     Dosage: TOTAL DAILY DOSE: 20 MG
     Route: 048
     Dates: start: 20080204, end: 20080204
  2. LEVITRA [Suspect]
     Dosage: TOTAL DAILY DOSE: 20 MG
     Route: 048
     Dates: start: 20080201, end: 20080201
  3. DIOVAN [Concomitant]

REACTIONS (1)
  - ERECTILE DYSFUNCTION [None]
